FAERS Safety Report 4923942-7 (Version None)
Quarter: 2006Q1

REPORT INFORMATION
  Report Type: 
  Country: None (occurrence: None)
  Receive Date: 20060227
  Receipt Date: 20050912
  Transmission Date: 20060701
  Serious: Yes (Hospitalization)
  Sender: FDA-Public Use
  Company Number: US-MERCK-0509USA01689

PATIENT
  Age: 60 Year
  Sex: Female

DRUGS (1)
  1. VIOXX [Suspect]
     Indication: SPINAL OSTEOARTHRITIS
     Route: 048
     Dates: start: 20021101, end: 20040601

REACTIONS (10)
  - CAROTID ARTERY STENOSIS [None]
  - CEREBRAL INFARCTION [None]
  - CEREBROVASCULAR ACCIDENT [None]
  - DEPRESSION [None]
  - DYSPHAGIA [None]
  - HYPERLIPIDAEMIA [None]
  - KLEBSIELLA INFECTION [None]
  - MALNUTRITION [None]
  - URINARY TRACT INFECTION [None]
  - VISUAL ACUITY REDUCED [None]
